FAERS Safety Report 22606218 (Version 2)
Quarter: 2023Q4

REPORT INFORMATION
  Report Type: Report from Study
  Country: US (occurrence: US)
  Receive Date: 20230615
  Receipt Date: 20231215
  Transmission Date: 20240109
  Serious: Yes (Hospitalization, Other)
  Sender: FDA-Public Use
  Company Number: US-AIMMUNE THERAPEUTICS, INC.-2023AIMT00575

PATIENT

DRUGS (1)
  1. VOWST [Suspect]
     Active Substance: DONOR HUMAN STOOL SPORES (ETHANOL TREATED)
     Indication: Clostridium difficile infection
     Dosage: 4 TABS IN SPLIT DOSES ONE DAY
     Route: 048
     Dates: start: 20160525, end: 20160525

REACTIONS (3)
  - Atrial fibrillation [Unknown]
  - Therapeutic procedure [Unknown]
  - Post procedural infection [Unknown]

NARRATIVE: CASE EVENT DATE: 20170101
